FAERS Safety Report 7411551-X (Version None)
Quarter: 2011Q2

REPORT INFORMATION
  Report Type: 
  Country: None (occurrence: None)
  Receive Date: 20110413
  Receipt Date: 20101012
  Transmission Date: 20111010
  Serious: Yes (Other)
  Sender: FDA-Public Use
  Company Number: US-BRISTOL-MYERS SQUIBB COMPANY-15254139

PATIENT
  Age: 67 Year
  Sex: Male

DRUGS (1)
  1. ERBITUX [Suspect]
     Indication: HEAD AND NECK CANCER
     Dosage: LIQUID. STOPPED ON 19JUN10 RESTARTED ON UNK DATE
     Route: 042
     Dates: start: 20100719

REACTIONS (3)
  - DIARRHOEA [None]
  - CHILLS [None]
  - VOMITING PROJECTILE [None]
